FAERS Safety Report 6183188-4 (Version None)
Quarter: 2009Q2

REPORT INFORMATION
  Report Type: 
  Country: None (occurrence: None)
  Receive Date: 20090507
  Receipt Date: 20090504
  Transmission Date: 20091009
  Serious: No
  Sender: FDA-Public Use
  Company Number: US-B.I. PHARMACEUTICALS,INC./RIDGEFIELD-2009-BP-05630BP

PATIENT
  Sex: Female
  Weight: 127.01 kg

DRUGS (6)
  1. COMBIVENT [Suspect]
     Indication: CHRONIC OBSTRUCTIVE PULMONARY DISEASE
     Dosage: 2PUF
     Route: 055
     Dates: start: 20080901
  2. OXYGEN [Concomitant]
     Indication: SLEEP APNOEA SYNDROME
     Route: 055
  3. INDERAL [Concomitant]
     Indication: HEART RATE IRREGULAR
     Route: 048
  4. PREMARIN [Concomitant]
     Indication: MENOPAUSE
     Route: 048
  5. ATROBAN HCL [Concomitant]
     Indication: HEART RATE IRREGULAR
     Route: 048
  6. NITROFUR [Concomitant]
     Indication: CYSTITIS
     Route: 048

REACTIONS (3)
  - COUGH [None]
  - DRY THROAT [None]
  - NAUSEA [None]
